FAERS Safety Report 9950624 (Version 1)
Quarter: 2014Q1

REPORT INFORMATION
  Report Type: Report from Study
  Country: US (occurrence: US)
  Receive Date: 20140304
  Receipt Date: 20140304
  Transmission Date: 20141002
  Serious: No
  Sender: FDA-Public Use
  Company Number: US-ABBVIE-13P-163-1069928-00

PATIENT
  Age: 35 Year
  Sex: Male

DRUGS (7)
  1. HUMIRA [Suspect]
     Indication: CROHN^S DISEASE
     Dates: start: 20121029
  2. IMURAN [Concomitant]
     Indication: CROHN^S DISEASE
     Dosage: DAILY
  3. AZATHIOPRINE [Concomitant]
     Indication: CROHN^S DISEASE
     Dosage: DAILY
  4. LISINOPRIL/HCTZ [Concomitant]
     Indication: HYPERTENSION
     Dosage: 20/25 MG DAILY
  5. BALSALAZIDE [Concomitant]
     Indication: CROHN^S DISEASE
  6. FLONASE [Concomitant]
     Indication: SEASONAL ALLERGY
  7. BENADRYL [Concomitant]
     Indication: SEASONAL ALLERGY

REACTIONS (2)
  - Injection site erythema [Recovered/Resolved]
  - Injection site pruritus [Recovered/Resolved]
